FAERS Safety Report 8954491 (Version 1)
Quarter: 2012Q4

REPORT INFORMATION
  Report Type: 
  Country: US (occurrence: US)
  Receive Date: 20121210
  Receipt Date: 20121210
  Transmission Date: 20130627
  Serious: Yes (Other)
  Sender: FDA-Public Use
  Company Number: US-AMGEN-USASP2012070264

PATIENT
  Sex: Female
  Weight: 3.18 kg

DRUGS (9)
  1. ENBREL [Suspect]
     Dosage: 25 mg, 2 times/wk
     Route: 063
     Dates: start: 20090101
  2. FOLIC ACID [Concomitant]
     Dosage: 1 mg, qd
     Route: 063
     Dates: start: 20080101
  3. PRENATAL VITAMINS                  /02014401/ [Concomitant]
     Dosage: UNK UNK, qd
     Route: 063
     Dates: start: 20080101
  4. CALCIUM D                          /00944201/ [Concomitant]
     Dosage: 500 mg, bid
     Route: 063
     Dates: start: 20080101
  5. VALTREX [Concomitant]
     Dosage: 500 mg, qd
     Route: 063
     Dates: start: 20080101
  6. COLACE [Concomitant]
     Dosage: UNK UNK, qd
     Route: 063
     Dates: start: 20080101
  7. PREDNISONE [Concomitant]
     Indication: JUVENILE ARTHRITIS
     Dosage: 20 mg, qd
     Route: 063
  8. PREVACID [Concomitant]
     Dosage: 30 mg, qd
     Route: 063
     Dates: start: 20080101
  9. VOLTAREN                           /00372301/ [Concomitant]
     Indication: JUVENILE ARTHRITIS
     Dosage: 75 mg, bid
     Route: 063
     Dates: start: 20110501, end: 20120509

REACTIONS (1)
  - Jaundice neonatal [Unknown]
